FAERS Safety Report 11766789 (Version 3)
Quarter: 2015Q4

REPORT INFORMATION
  Report Type: Report from Study
  Country: US (occurrence: US)
  Receive Date: 20151123
  Receipt Date: 20151228
  Transmission Date: 20160304
  Serious: Yes (Death, Other)
  Sender: FDA-Public Use
  Company Number: US-AMGEN-USASL2015123097

PATIENT
  Age: 80 Year
  Sex: Female
  Weight: 73 kg

DRUGS (8)
  1. PENNSAID [Concomitant]
     Active Substance: DICLOFENAC SODIUM
     Dosage: 1.5 %, UNK
     Route: 061
     Dates: start: 20130114
  2. LIDODERM [Concomitant]
     Active Substance: LIDOCAINE
     Dosage: 5 %, TID
     Route: 062
  3. VITAMIN D                          /00107901/ [Concomitant]
     Active Substance: ERGOCALCIFEROL
     Dosage: 50000 UNIT, QD
     Route: 048
     Dates: start: 20150715
  4. NEXIUM [Concomitant]
     Active Substance: ESOMEPRAZOLE MAGNESIUM
     Indication: GASTROOESOPHAGEAL REFLUX DISEASE
     Dosage: 40 MG, QD
     Route: 048
     Dates: start: 20130319
  5. PROLIA [Suspect]
     Active Substance: DENOSUMAB
     Indication: OSTEOPOROSIS
     Dosage: 60 MG, Q6MO
     Route: 058
     Dates: start: 20141217
  6. CRESTOR [Concomitant]
     Active Substance: ROSUVASTATIN CALCIUM
     Indication: BLOOD CHOLESTEROL INCREASED
     Dosage: 40 MG, QD
     Route: 048
     Dates: start: 20130319
  7. LISINOPRIL. [Concomitant]
     Active Substance: LISINOPRIL
     Indication: HYPERTENSION
     Dosage: 10 MG, QD
     Route: 048
     Dates: start: 20130319
  8. FLECTOR                            /00372302/ [Concomitant]
     Active Substance: DICLOFENAC SODIUM
     Dosage: 1.3 %, QD
     Route: 062
     Dates: start: 20150715

REACTIONS (22)
  - Constipation [Unknown]
  - Joint hyperextension [Unknown]
  - Joint stiffness [Unknown]
  - Myalgia [Unknown]
  - Gait disturbance [Unknown]
  - Joint injury [Unknown]
  - Death [Fatal]
  - Arthralgia [Not Recovered/Not Resolved]
  - Musculoskeletal pain [Unknown]
  - Corrective lens user [Unknown]
  - Neck pain [Unknown]
  - Mobility decreased [Unknown]
  - Fatigue [Unknown]
  - Joint swelling [Unknown]
  - Headache [Unknown]
  - Muscle spasms [Unknown]
  - Joint range of motion decreased [Unknown]
  - Confusional state [Unknown]
  - Contusion [Unknown]
  - Activities of daily living impaired [Unknown]
  - Hearing impaired [Unknown]
  - Memory impairment [Unknown]

NARRATIVE: CASE EVENT DATE: 20150913
